FAERS Safety Report 6126077-3 (Version None)
Quarter: 2009Q1

REPORT INFORMATION
  Report Type: 
  Country: None (occurrence: None)
  Receive Date: 20090320
  Receipt Date: 20090317
  Transmission Date: 20090719
  Serious: Yes (Hospitalization)
  Sender: FDA-Public Use
  Company Number: US-ELI_LILLY_AND_COMPANY-US200903004146

PATIENT
  Sex: Female
  Weight: 95.692 kg

DRUGS (14)
  1. BYETTA [Suspect]
     Indication: TYPE 2 DIABETES MELLITUS
     Dosage: 5 UG, 2/D
     Route: 058
     Dates: start: 20070101, end: 20080101
  2. BYETTA [Suspect]
     Dosage: 10 UG, 2/D
     Route: 058
     Dates: start: 20080101
  3. GLUCOPHAGE XR [Concomitant]
     Indication: TYPE 2 DIABETES MELLITUS
     Dosage: 500 MG, 2/D
  4. STARLIX [Concomitant]
     Indication: TYPE 2 DIABETES MELLITUS
     Dosage: 120 MG, EACH EVENING
  5. GLIMEPIRIDE [Concomitant]
     Indication: TYPE 2 DIABETES MELLITUS
     Dosage: UNK, DAILY (1/D)
  6. DIOVAN HCT [Concomitant]
     Indication: HYPERTENSION
     Dosage: 60 MG, 2/D
  7. THYROID TAB [Concomitant]
     Indication: THYROID DISORDER
     Dosage: 60 MG, 2/D
  8. SINGULAIR [Concomitant]
     Indication: ASTHMA
     Dosage: 10 MG, DAILY (1/D)
  9. CELEBREX [Concomitant]
     Indication: ARTHRALGIA
     Dosage: 200 MG, DAILY (1/D)
  10. VYTORIN [Concomitant]
     Indication: BLOOD CHOLESTEROL
     Dosage: UNK, DAILY (1/D)
  11. TRICOR [Concomitant]
     Indication: BLOOD CHOLESTEROL
     Dosage: 140 MG, DAILY (1/D)
  12. CYMBALTA [Concomitant]
     Indication: HYPOAESTHESIA
     Dosage: 60 MG, DAILY (1/D)
  13. LOVAZA [Concomitant]
     Dosage: 3000 MG, DAILY (1/D)
  14. MULTIVITAMIN                       /00831701/ [Concomitant]
     Dosage: UNK, DAILY (1/D)

REACTIONS (3)
  - JOINT SWELLING [None]
  - JOINT WARMTH [None]
  - OSTEOARTHRITIS [None]
